FAERS Safety Report 23637127 (Version 6)
Quarter: 2024Q3

REPORT INFORMATION
  Report Type: Report from Study
  Country: ES (occurrence: ES)
  Receive Date: 20240315
  Receipt Date: 20240712
  Transmission Date: 20241017
  Serious: Yes (Hospitalization, Other)
  Sender: PFIZER
  Company Number: ES-009507513-2403ESP001150

PATIENT
  Age: 55 Year
  Sex: Male
  Weight: 78.8 kg

DRUGS (10)
  1. CARBOPLATIN [Suspect]
     Active Substance: CARBOPLATIN
     Indication: Non-small cell lung cancer metastatic
     Dosage: 5 AREA UNDER THE CURVE (AUC), 1Q3W
     Route: 042
     Dates: start: 20240214, end: 20240214
  2. PACLITAXEL [Suspect]
     Active Substance: PACLITAXEL
     Indication: Non-small cell lung cancer metastatic
     Dosage: 200 MG/M2, EVERY 3 WEEKS
     Route: 042
     Dates: start: 20240214, end: 20240214
  3. PEMBROLIZUMAB [Suspect]
     Active Substance: PEMBROLIZUMAB
     Indication: Non-small cell lung cancer metastatic
     Dosage: 200 MG, EVERY 3 WEEKS
     Dates: start: 20240214, end: 20240214
  4. TECAGINLIMAB [Suspect]
     Active Substance: TECAGINLIMAB
     Indication: Non-small cell lung cancer metastatic
     Dosage: 100 MG, EVERY 3 WEEKS
     Route: 042
     Dates: start: 20240214, end: 20240214
  5. ONDANSETRON [Concomitant]
     Active Substance: ONDANSETRON
     Dosage: UNK
     Dates: start: 20240214
  6. FAMOTIDINE [Concomitant]
     Active Substance: FAMOTIDINE
     Dosage: UNK
     Dates: start: 20240214
  7. ACETAMINOPHEN [Concomitant]
     Active Substance: ACETAMINOPHEN
     Dosage: UNK
  8. DEXAMETHASONE [Concomitant]
     Active Substance: DEXAMETHASONE
     Dosage: UNK
     Dates: start: 20240214
  9. POLARAMINE [Concomitant]
     Active Substance: DEXCHLORPHENIRAMINE MALEATE
     Dosage: UNK
     Dates: start: 20240214
  10. IBUPROFEN [Concomitant]
     Active Substance: IBUPROFEN
     Dosage: UNK
     Dates: start: 20240214

REACTIONS (1)
  - Rash [Recovered/Resolved]

NARRATIVE: CASE EVENT DATE: 20240219
